FAERS Safety Report 11958030 (Version 2)
Quarter: 2016Q1

REPORT INFORMATION
  Report Type: Spontaneous
  Country: US (occurrence: US)
  Receive Date: 20160126
  Receipt Date: 20160202
  Transmission Date: 20160526
  Serious: No
  Sender: FDA-Public Use
  Company Number: US-ABBVIE-15K-163-1349576-00

PATIENT
  Age: 53 Year
  Sex: Female
  Weight: 67.65 kg

DRUGS (3)
  1. GLUCOSAMINE [Concomitant]
     Active Substance: GLUCOSAMINE
     Indication: BONE DISORDER
  2. HUMIRA [Suspect]
     Active Substance: ADALIMUMAB
     Indication: RHEUMATOID ARTHRITIS
     Route: 058
     Dates: start: 20130315, end: 2015
  3. IRON [Concomitant]
     Active Substance: IRON
     Indication: SUPPLEMENTATION THERAPY

REACTIONS (4)
  - Blood urine present [Recovered/Resolved]
  - Urinary tract infection [Recovered/Resolved]
  - Arthralgia [Not Recovered/Not Resolved]
  - Back pain [Unknown]

NARRATIVE: CASE EVENT DATE: 201410
